FAERS Safety Report 7412961-7 (Version None)
Quarter: 2011Q2

REPORT INFORMATION
  Report Type: 
  Country: None (occurrence: None)
  Receive Date: 20110413
  Receipt Date: 20110330
  Transmission Date: 20111010
  Serious: Yes (Other)
  Sender: FDA-Public Use
  Company Number: PHHY2011DK26068

PATIENT
  Sex: Male
  Weight: 46 kg

DRUGS (2)
  1. SERTRALIN HEXAL [Suspect]
     Dosage: 50 MG, QD
     Route: 048
     Dates: start: 20100427, end: 20101015
  2. SERTRALIN HEXAL [Suspect]
     Indication: DEPRESSION
     Dosage: STYRKE: 50 MG.
     Route: 048

REACTIONS (3)
  - SWELLING [None]
  - LIP SWELLING [None]
  - CONTUSION [None]
